FAERS Safety Report 8766359 (Version 1)
Quarter: 2012Q4

REPORT INFORMATION
  Report Type: Report from Study
  Country: US (occurrence: US)
  Receive Date: 20120904
  Receipt Date: 20120904
  Transmission Date: 20130627
  Serious: Yes (Hospitalization)
  Sender: FDA-Public Use
  Company Number: US-009507513-1208USA012438

PATIENT

DRUGS (11)
  1. FINASTERIDE [Suspect]
  2. CARVEDILOL [Suspect]
  3. SUNITINIB MALATE [Suspect]
     Indication: RENAL CELL CARCINOMA
     Dosage: 400 mg, bid
     Route: 048
     Dates: start: 20070830
  4. SUNITINIB MALATE [Suspect]
     Dosage: 50 mg, bid
     Route: 048
     Dates: start: 20080911
  5. CANDESARTAN [Suspect]
  6. FUROSEMIDE [Concomitant]
  7. TAMSULOSIN HYDROCHLORIDE [Suspect]
  8. LANSOPRAZOLE [Concomitant]
  9. SORAFENIB [Suspect]
     Indication: RENAL CELL CARCINOMA
     Dosage: 400 mg, bid
     Route: 048
     Dates: start: 20070830
  10. SORAFENIB [Suspect]
     Dosage: 400 mg, bid
     Route: 048
     Dates: start: 20080911
  11. CIPRO [Suspect]

REACTIONS (1)
  - Syncope [Unknown]
